FAERS Safety Report 7383321-2 (Version None)
Quarter: 2011Q1

REPORT INFORMATION
  Report Type: 
  Country: None (occurrence: None)
  Receive Date: 20110330
  Receipt Date: 20110318
  Transmission Date: 20110831
  Serious: Yes (Other)
  Sender: FDA-Public Use
  Company Number: US-SANOFI-AVENTIS-2011SA017401

PATIENT
  Age: 77 Year
  Sex: Female

DRUGS (6)
  1. MULTAQ [Suspect]
     Indication: ATRIAL FIBRILLATION
     Route: 048
     Dates: start: 20101201
  2. NAPROXEN [Suspect]
     Dosage: 2 ON THE FIRST DAY AND THEN 1 THE NEXT 3 DAYS
     Route: 065
     Dates: start: 20110301
  3. MICARDIS [Concomitant]
  4. CORTISONE [Concomitant]
     Route: 051
  5. COUMADIN [Concomitant]
  6. ATENOLOL [Concomitant]

REACTIONS (4)
  - FATIGUE [None]
  - DYSPNOEA [None]
  - PAIN IN EXTREMITY [None]
  - ATRIAL FIBRILLATION [None]
